FAERS Safety Report 7354158-5 (Version None)
Quarter: 2011Q1

REPORT INFORMATION
  Report Type: 
  Country: None (occurrence: None)
  Receive Date: 20110316
  Receipt Date: 20110304
  Transmission Date: 20110831
  Serious: Yes (Other)
  Sender: FDA-Public Use
  Company Number: FR-AMGEN-FRASP2011013683

PATIENT
  Age: 66 Year
  Sex: Female

DRUGS (1)
  1. ENBREL [Suspect]
     Indication: RHEUMATOID ARTHRITIS
     Dosage: UNK

REACTIONS (5)
  - NECROTISING SCLERITIS [None]
  - PYOPNEUMOTHORAX [None]
  - RHEUMATOID NODULE [None]
  - PULMONARY CAVITATION [None]
  - PERICARDITIS [None]
